FAERS Safety Report 7959460-1 (Version None)
Quarter: 2011Q4

REPORT INFORMATION
  Report Type: 
  Country: None (occurrence: None)
  Receive Date: 20111206
  Receipt Date: 20111201
  Transmission Date: 20120403
  Serious: Yes (Other)
  Sender: FDA-Public Use
  Company Number: US-PFIZER INC-2011294508

PATIENT
  Sex: Female
  Weight: 72.562 kg

DRUGS (5)
  1. CELEBREX [Suspect]
     Indication: OSTEOARTHRITIS
  2. CELEBREX [Suspect]
     Indication: PAIN
     Dosage: UNK
     Dates: start: 20111107, end: 20111107
  3. CELEBREX [Suspect]
     Indication: HIP ARTHROPLASTY
  4. MORPHINE [Concomitant]
     Indication: PAIN
     Dosage: UNK
  5. MORPHINE [Concomitant]
     Indication: OSTEOARTHRITIS

REACTIONS (2)
  - ANGIOEDEMA [None]
  - FEELING HOT [None]
